FAERS Safety Report 15554871 (Version 1)
Quarter: 2018Q4

REPORT INFORMATION
  Report Type: Spontaneous
  Country: US (occurrence: US)
  Receive Date: 20181022
  Receipt Date: 20181022
  Transmission Date: 20190205
  Serious: No
  Sender: FDA-Public Use
  Company Number: None

PATIENT
  Age: 73 Year
  Sex: Female

DRUGS (1)
  1. PROCRIT [Suspect]
     Active Substance: ERYTHROPOIETIN
     Indication: NEPHROGENIC ANAEMIA
     Dosage: ?          OTHER DOSE:10.000 UNITS;OTHER FREQUENCY:EVERY 14 DAYS;?
     Route: 058
     Dates: start: 20180917

REACTIONS (2)
  - Bronchitis [None]
  - Influenza like illness [None]

NARRATIVE: CASE EVENT DATE: 20180927
